FAERS Safety Report 6604530-3 (Version None)
Quarter: 2010Q1

REPORT INFORMATION
  Report Type: 
  Country: None (occurrence: None)
  Receive Date: 20100226
  Receipt Date: 20091113
  Transmission Date: 20100710
  Serious: No
  Sender: FDA-Public Use
  Company Number: A0816988A

PATIENT
  Age: 54 Year
  Sex: Female

DRUGS (4)
  1. LAMICTAL CD [Suspect]
     Dosage: 150MG AT NIGHT
     Route: 048
  2. LEXAPRO [Concomitant]
  3. SIMVASTATIN [Concomitant]
  4. LEVOTHROID [Concomitant]

REACTIONS (2)
  - BLOOD PRESSURE INCREASED [None]
  - HEART RATE INCREASED [None]
